FAERS Safety Report 13546888 (Version 1)
Quarter: 2017Q2

REPORT INFORMATION
  Report Type: Spontaneous
  Country: US (occurrence: US)
  Receive Date: 20170515
  Receipt Date: 20170515
  Transmission Date: 20170830
  Serious: No
  Sender: FDA-Public Use
  Company Number: US-WARNER CHILCOTT-2014-003144

PATIENT
  Age: 87 Year
  Sex: Female
  Weight: 51.7 kg

DRUGS (14)
  1. METHYLSULFONYLMETHANE [Concomitant]
     Active Substance: DIMETHYL SULFONE
     Dosage: 1000 MG DAILY
  2. ACTONEL [Suspect]
     Active Substance: RISEDRONATE SODIUM
     Indication: OSTEOPOROSIS
     Dosage: 35 MG ONCE WEEKLY
     Route: 048
     Dates: start: 20130318, end: 20140912
  3. COUMADIN [Concomitant]
     Active Substance: WARFARIN SODIUM
     Dosage: 3 MG, BEDTIME
  4. MULTIVIT [Concomitant]
     Active Substance: VITAMINS
     Dosage: 1 DF, DAILY
  5. POTASSIUM CHLORIDE. [Concomitant]
     Active Substance: POTASSIUM CHLORIDE
     Dosage: TWO 10 MEQ DOSE FORMS ONCE DAILY
  6. PRILOSEC [Concomitant]
     Active Substance: OMEPRAZOLE MAGNESIUM
  7. ACTONEL [Suspect]
     Active Substance: RISEDRONATE SODIUM
     Dosage: UNK, UNKNOWN
     Route: 065
     Dates: start: 2003, end: 2006
  8. CALCITONIN [Concomitant]
     Active Substance: CALCITONIN
     Dosage: 200 IU DAILY
  9. MIRALAX [Concomitant]
     Active Substance: POLYETHYLENE GLYCOL 3350
     Dosage: 17 G DAILY
  10. CALCIUM 600+D [Concomitant]
     Active Substance: CALCIUM\VITAMIN D
     Dosage: 1 DOSE FORM TWICE DAILY
  11. XANAX [Concomitant]
     Active Substance: ALPRAZOLAM
     Dosage: 0.5 MG AT BEDTIME
  12. ASPIRIN. [Concomitant]
     Active Substance: ASPIRIN
     Dosage: 81 MG DAILY
  13. LASIX [Concomitant]
     Active Substance: FUROSEMIDE
     Dosage: TWO 20 MG DOSE FORMS ONCE DAILY
  14. TOPROL XL [Concomitant]
     Active Substance: METOPROLOL SUCCINATE
     Dosage: 25 MG DAILY

REACTIONS (5)
  - Pain in jaw [Recovered/Resolved]
  - Asthenia [Unknown]
  - Drug hypersensitivity [Unknown]
  - Mastication disorder [Recovered/Resolved]
  - Tooth disorder [Not Recovered/Not Resolved]
